FAERS Safety Report 16349913 (Version 1)
Quarter: 2019Q2

REPORT INFORMATION
  Report Type: Spontaneous
  Country: DE (occurrence: DE)
  Receive Date: 20190523
  Receipt Date: 20190523
  Transmission Date: 20190711
  Serious: Yes (Other)
  Sender: FDA-Public Use
  Company Number: DE-PFIZER INC-2019217483

PATIENT

DRUGS (3)
  1. CARBOPLATIN. [Suspect]
     Active Substance: CARBOPLATIN
     Indication: NEOPLASM MALIGNANT
     Dosage: UNK, CYCLIC (3 CYCLES)
  2. PEMBROLIZUMAB. [Suspect]
     Active Substance: PEMBROLIZUMAB
     Indication: NEOPLASM MALIGNANT
     Dosage: UNK, CYCLIC (3 CYCLES)
  3. PEMETREXED DISODIUM [Suspect]
     Active Substance: PEMETREXED DISODIUM
     Indication: NEOPLASM MALIGNANT
     Dosage: UNK, CYCLIC (3 CYCLES)

REACTIONS (1)
  - Brain abscess [Unknown]
